FAERS Safety Report 7540893-2 (Version None)
Quarter: 2011Q2

REPORT INFORMATION
  Report Type: 
  Country: None (occurrence: None)
  Receive Date: 20110610
  Receipt Date: 20110530
  Transmission Date: 20111010
  Serious: Yes (Other)
  Sender: FDA-Public Use
  Company Number: PHHY2011CH46647

PATIENT
  Age: 55 Year
  Sex: Male

DRUGS (1)
  1. SANDOSTATIN [Suspect]
     Indication: COLORECTAL CANCER
     Dosage: 0.3 MG, UNK
     Dates: start: 20110501, end: 20110501

REACTIONS (5)
  - PAIN [None]
  - DIARRHOEA [None]
  - HYPOGLYCAEMIA [None]
  - HEADACHE [None]
  - BLOOD PRESSURE INCREASED [None]
